FAERS Safety Report 23027098 (Version 1)
Quarter: 2023Q4

REPORT INFORMATION
  Report Type: Spontaneous
  Country: US (occurrence: None)
  Receive Date: 20231003
  Receipt Date: 20231003
  Transmission Date: 20240109
  Serious: Yes (Other)
  Sender: FDA-Public Use
  Company Number: None

PATIENT
  Age: 57 Year
  Sex: Female
  Weight: 96.75 kg

DRUGS (11)
  1. BELBUCA [Suspect]
     Active Substance: BUPRENORPHINE HYDROCHLORIDE
     Indication: Pain
     Dosage: 1 FILM  TWICE A DAY  ?ALLY TO CHEACK INSIDE MOUTH
     Route: 050
     Dates: start: 20191120
  2. HCZ/Lisinopril [Concomitant]
  3. EZETIMIBE [Concomitant]
     Active Substance: EZETIMIBE
  4. KEPPRA [Concomitant]
     Active Substance: LEVETIRACETAM
  5. Ajoy [Concomitant]
  6. Acycolovier [Concomitant]
  7. Statins [Concomitant]
  8. PROBIOTICS NOS [Concomitant]
     Active Substance: PROBIOTICS NOS
  9. VITAMINS [Concomitant]
     Active Substance: VITAMINS
  10. QUERCITIN [Concomitant]
  11. STOOL SOFTENER (DOCUSATE) [Concomitant]
     Active Substance: DOCUSATE

REACTIONS (3)
  - Dental caries [None]
  - Tooth extraction [None]
  - Impaired healing [None]

NARRATIVE: CASE EVENT DATE: 20230118
